APPROVED DRUG PRODUCT: ONDANSETRON HYDROCHLORIDE PRESERVATIVE FREE
Active Ingredient: ONDANSETRON HYDROCHLORIDE
Strength: EQ 2MG BASE/ML
Dosage Form/Route: INJECTABLE;INJECTION
Application: A206845 | Product #001
Applicant: ACCORD HEALTHCARE INC
Approved: Mar 10, 2016 | RLD: No | RS: No | Type: DISCN